FAERS Safety Report 9595118 (Version 1)
Quarter: 2013Q4

REPORT INFORMATION
  Report Type: Spontaneous
  Country: US (occurrence: US)
  Receive Date: 20131004
  Receipt Date: 20131004
  Transmission Date: 20140711
  Serious: Yes (Other)
  Sender: FDA-Public Use
  Company Number: US-BAYER-2013-119751

PATIENT
  Age: 47 Year
  Sex: Female
  Weight: 68.93 kg

DRUGS (2)
  1. YAZ [Suspect]
  2. VALTREX [Concomitant]
     Indication: ORAL HERPES
     Dosage: 2 MG, UNK

REACTIONS (1)
  - Deep vein thrombosis [None]
